FAERS Safety Report 26192804 (Version 1)
Quarter: 2025Q4

REPORT INFORMATION
  Report Type: Spontaneous
  Country: CN (occurrence: CN)
  Receive Date: 20251223
  Receipt Date: 20251223
  Transmission Date: 20260118
  Serious: Yes (Other)
  Sender: PFIZER
  Company Number: CN-PFIZER INC-PV202500146596

PATIENT
  Age: 71 Year
  Sex: Female

DRUGS (3)
  1. PALBOCICLIB [Suspect]
     Active Substance: PALBOCICLIB
     Indication: Breast cancer metastatic
  2. DALPICICLIB [Suspect]
     Active Substance: DALPICICLIB
     Indication: Breast cancer metastatic
     Dosage: 150 MG, 1X/DAY (21 DAYS O, 7 DAYS OFF)
     Route: 048
  3. ABEMACICLIB [Suspect]
     Active Substance: ABEMACICLIB
     Indication: Breast cancer metastatic
     Dosage: UNK

REACTIONS (1)
  - Vitiligo [Not Recovered/Not Resolved]
